FAERS Safety Report 7434189-7 (Version None)
Quarter: 2011Q2

REPORT INFORMATION
  Report Type: 
  Country: None (occurrence: None)
  Receive Date: 20110425
  Receipt Date: 20110419
  Transmission Date: 20111010
  Serious: No
  Sender: FDA-Public Use
  Company Number: US-PFIZER INC-2011085464

PATIENT
  Sex: Female

DRUGS (4)
  1. PRILOSEC [Concomitant]
     Dosage: UNK
  2. ADDERALL 10 [Concomitant]
     Dosage: UNK
  3. PRISTIQ [Suspect]
     Dosage: UNK
  4. SENOKOT [Concomitant]
     Dosage: UNK

REACTIONS (6)
  - MALAISE [None]
  - MEDICATION RESIDUE [None]
  - RESTLESSNESS [None]
  - DIZZINESS [None]
  - NAUSEA [None]
  - ANXIETY [None]
